FAERS Safety Report 6957965-3 (Version None)
Quarter: 2010Q3

REPORT INFORMATION
  Report Type: 
  Country: None (occurrence: None)
  Receive Date: 20100817
  Receipt Date: 20090714
  Transmission Date: 20110219
  Serious: Yes (Hospitalization)
  Sender: FDA-Public Use
  Company Number: 20096955

PATIENT
  Sex: Male

DRUGS (5)
  1. LIORESAL [Suspect]
     Indication: MUSCLE SPASTICITY
     Dosage: MCG,DAILY, INTRATHECAL
     Route: 037
  2. MORPHINE [Concomitant]
  3. CLONIDINE [Concomitant]
  4. ORAL RITALIN [Concomitant]
  5. OXYCONTIN [Concomitant]

REACTIONS (2)
  - OVERDOSE [None]
  - SOMNOLENCE [None]
